FAERS Safety Report 24268411 (Version 1)
Quarter: 2024Q3

REPORT INFORMATION
  Report Type: Spontaneous
  Country: US (occurrence: US)
  Receive Date: 20240830
  Receipt Date: 20240830
  Transmission Date: 20241016
  Serious: No
  Sender: RECKITT BENCKISER
  Company Number: US-PROD-AS2-212756134-RB-086175-2024

PATIENT
  Age: 81 Year
  Sex: Female

DRUGS (2)
  1. MUCINEX MAXIMUM STRENGTH [Suspect]
     Active Substance: GUAIFENESIN
     Indication: Sinusitis
     Dosage: THREE CAPSULE
     Route: 048
     Dates: start: 20240218, end: 20240221
  2. MUCINEX MAXIMUM STRENGTH [Suspect]
     Active Substance: GUAIFENESIN
     Indication: Sinus congestion

REACTIONS (2)
  - Wrong technique in product usage process [Not Recovered/Not Resolved]
  - Therapeutic product effective for unapproved indication [Unknown]
